FAERS Safety Report 6515796-2 (Version None)
Quarter: 2009Q4

REPORT INFORMATION
  Report Type: 
  Country: None (occurrence: None)
  Receive Date: 20091223
  Receipt Date: 20091217
  Transmission Date: 20100525
  Serious: Yes (Death, Other)
  Sender: FDA-Public Use
  Company Number: PHEH2007US07840

PATIENT
  Sex: Female

DRUGS (18)
  1. ZELNORM [Suspect]
     Indication: IRRITABLE BOWEL SYNDROME
  2. HYDROCHLOROTHIAZIDE [Concomitant]
     Dosage: 25 MG, QD
  3. QUINAPRIL [Concomitant]
  4. ACIPHEX [Concomitant]
  5. NEXIUM [Concomitant]
  6. ZELNORM                                 /CAN/ [Concomitant]
  7. AMITRIPTYLINE [Concomitant]
  8. NITROGLYCERIN [Concomitant]
  9. ACCUPRIL [Concomitant]
     Dosage: 40 MG, QD
  10. LOPRESSOR [Concomitant]
     Dosage: 25 MG, UNK
  11. AMBIEN [Concomitant]
     Dosage: 10 MG, UNK
  12. ASPIRIN [Concomitant]
     Dosage: 81 MG, QD
  13. TYLENOL (CAPLET) [Concomitant]
     Dosage: 650 MG, UNK
  14. PERCOCET [Concomitant]
  15. TOPROL-XL [Concomitant]
     Dosage: 25 MG, UNK
  16. TORADOL [Concomitant]
     Dosage: 30 MG, UNK
     Route: 042
  17. ZITHROMAX [Concomitant]
     Dosage: 500 MG, UNK
     Route: 042
  18. ZANTAC [Concomitant]
     Dosage: 150 MG, BID

REACTIONS (13)
  - ACUTE MYOCARDIAL INFARCTION [None]
  - ANAEMIA [None]
  - ARTERIOSCLEROSIS CORONARY ARTERY [None]
  - ARTERIOSPASM CORONARY [None]
  - ASPIRATION PLEURAL CAVITY [None]
  - CHEST PAIN [None]
  - DYSPNOEA [None]
  - ELECTROCARDIOGRAM ABNORMAL [None]
  - GASTROOESOPHAGEAL REFLUX DISEASE [None]
  - MYOCARDIAL FIBROSIS [None]
  - OBESITY [None]
  - PLEURAL EFFUSION [None]
  - PULMONARY EMBOLISM [None]
